FAERS Safety Report 10896139 (Version 1)
Quarter: 2015Q1

REPORT INFORMATION
  Report Type: Spontaneous
  Country: US (occurrence: US)
  Receive Date: 20150309
  Receipt Date: 20150309
  Transmission Date: 20150721
  Serious: No
  Sender: FDA-Public Use
  Company Number: US-009507513-1503USA000022

PATIENT
  Age: 16 Year
  Sex: Male

DRUGS (2)
  1. GRASTEK [Suspect]
     Active Substance: PHLEUM PRATENSE POLLEN
     Indication: SEASONAL ALLERGY
     Dosage: 1 TABLET / ONCE A DAY
     Route: 060
     Dates: start: 20150210, end: 20150210
  2. GRASTEK [Suspect]
     Active Substance: PHLEUM PRATENSE POLLEN
     Dosage: 1 TABLET / ONCE A DAY
     Route: 060
     Dates: start: 20150212, end: 20150212

REACTIONS (2)
  - Stomatitis [Recovering/Resolving]
  - Throat irritation [Recovering/Resolving]

NARRATIVE: CASE EVENT DATE: 20150210
